FAERS Safety Report 7423572-1 (Version None)
Quarter: 2011Q2

REPORT INFORMATION
  Report Type: 
  Country: None (occurrence: None)
  Receive Date: 20110413
  Receipt Date: 20110413
  Transmission Date: 20111010
  Serious: Yes (Hospitalization)
  Sender: FDA-Public Use
  Company Number: None

PATIENT
  Age: 78 Year
  Sex: Male
  Weight: 104.2 kg

DRUGS (1)
  1. FUROSEMIDE [Suspect]
     Dosage: 80 MG EVERY DAY PO
     Route: 048
     Dates: start: 20101216, end: 20101222

REACTIONS (2)
  - RENAL FAILURE ACUTE [None]
  - HYPOTENSION [None]
